FAERS Safety Report 10461354 (Version 2)
Quarter: 2014Q3

REPORT INFORMATION
  Report Type: Spontaneous
  Country: DE (occurrence: None)
  Receive Date: 20140916
  Receipt Date: 20140925
  Transmission Date: 20150326
  Serious: Yes (Hospitalization)
  Sender: FDA-Public Use
  Company Number: DE-017049

PATIENT
  Age: 49 Year
  Sex: Female
  Weight: 74 kg

DRUGS (1)
  1. PICOPREP [Suspect]
     Active Substance: CITRIC ACID MONOHYDRATE\MAGNESIUM OXIDE\SODIUM PICOSULFATE
     Indication: BOWEL PREPARATION
     Dosage: 2 DF TOTAL, 2 SACHETS ORAL
     Route: 048
     Dates: start: 20140904, end: 20140904

REACTIONS (11)
  - Muscle spasms [None]
  - Chills [None]
  - Tetany [None]
  - Muscle rigidity [None]
  - Nausea [None]
  - Vomiting [None]
  - Hyperventilation [None]
  - Respiratory alkalosis [None]
  - Dyspnoea [None]
  - Headache [None]
  - Fatigue [None]

NARRATIVE: CASE EVENT DATE: 20140904
